FAERS Safety Report 8183175-0 (Version None)
Quarter: 2012Q1

REPORT INFORMATION
  Report Type: 
  Country: None (occurrence: None)
  Receive Date: 20120127
  Receipt Date: 20111013
  Transmission Date: 20120608
  Serious: Yes (Other)
  Sender: FDA-Public Use
  Company Number: AMAG201100213

PATIENT
  Age: 79 Year
  Sex: Female
  Weight: 52.6 kg

DRUGS (13)
  1. FERROUS GLUCONATE (FERROUS GLUCONATE) [Concomitant]
  2. OXYCODONE W/PARACETAMOL (OXYCODONE, PARACETAMOL) [Concomitant]
  3. ASPIRIN [Concomitant]
  4. CITRACAL + D (CALCIUM CITRATE, ERGOCALCIFEROL) [Concomitant]
  5. FUROSEMIDE [Concomitant]
  6. OMEPRAZOLE [Concomitant]
  7. SIMVASTATIN [Concomitant]
  8. ALENDRONATE SODIUM [Concomitant]
  9. ENALAPRIL MALEATE [Concomitant]
  10. MULTIVITAMIN (VITAMIN NOS) [Concomitant]
  11. AMLODIPINE (AMLODIPINE MALEATE) [Concomitant]
  12. ATENOLOL [Concomitant]
  13. FERAHEME [Suspect]
     Indication: IRON DEFICIENCY ANAEMIA
     Dosage: 60 MG, SINGLE, INTRAVENOUS
     Route: 042
     Dates: start: 20111011, end: 20111011

REACTIONS (9)
  - HYPOTENSION [None]
  - COLD SWEAT [None]
  - CONFUSIONAL STATE [None]
  - DIZZINESS [None]
  - BACK PAIN [None]
  - INFUSION SITE EXTRAVASATION [None]
  - ANXIETY [None]
  - UNRESPONSIVE TO STIMULI [None]
  - RESTLESSNESS [None]
